FAERS Safety Report 6886865-2 (Version None)
Quarter: 2010Q3

REPORT INFORMATION
  Report Type: 
  Country: None (occurrence: None)
  Receive Date: 20100729
  Receipt Date: 20100729
  Transmission Date: 20110219
  Serious: Yes (Life-Threatening, Hospitalization)
  Sender: FDA-Public Use
  Company Number: None

PATIENT
  Sex: Male
  Weight: 160 kg

DRUGS (5)
  1. THORAZINE [Suspect]
     Dosage: OVERDOSE ILL
     Dates: start: 19770101, end: 20100101
  2. HALDOL [Suspect]
     Dosage: OVERDOSE ILL
     Dates: start: 19770101, end: 20100101
  3. ZEPIKAL [Suspect]
     Dosage: OVERDOSE ILL
     Dates: start: 19770101, end: 20100101
  4. SEROQUEL [Suspect]
     Dosage: OVERDOSE ILL
     Dates: start: 19770101, end: 20100101
  5. MELLARIL [Suspect]
     Dosage: OVERDOSE ILL
     Dates: start: 19770101, end: 20100101

REACTIONS (6)
  - COLONOSCOPY [None]
  - LOSS OF LIBIDO [None]
  - MOUTH HAEMORRHAGE [None]
  - OVERDOSE [None]
  - RECTAL HAEMORRHAGE [None]
  - VICTIM OF SEXUAL ABUSE [None]
